FAERS Safety Report 8088451-8 (Version None)
Quarter: 2012Q1

REPORT INFORMATION
  Report Type: 
  Country: None (occurrence: None)
  Receive Date: 20120128
  Receipt Date: 20110417
  Transmission Date: 20120608
  Serious: No
  Sender: FDA-Public Use
  Company Number: US-ABBOTT-11P-163-0719785-00

PATIENT
  Age: 69 Year
  Sex: Female

DRUGS (5)
  1. LOMOTIL [Concomitant]
     Indication: DIARRHOEA
  2. LEVOTHYROXINE SODIUM [Concomitant]
     Indication: BLOOD THYROID STIMULATING HORMONE DECREASED
  3. CITALOPRAM [Concomitant]
     Indication: DEPRESSION
  4. VITAMIN B-12 [Concomitant]
     Indication: ANAEMIA
     Dosage: SHOTS, ONCE MONTHLY
  5. HUMIRA [Suspect]
     Indication: CROHN'S DISEASE
     Dates: start: 20110315

REACTIONS (3)
  - GASTROENTERITIS VIRAL [None]
  - VOMITING [None]
  - DIARRHOEA [None]
